FAERS Safety Report 4276729-5 (Version None)
Quarter: 2004Q1

REPORT INFORMATION
  Report Type: 
  Country: None (occurrence: None)
  Receive Date: 20040120
  Receipt Date: 20040120
  Transmission Date: 20041129
  Serious: Yes (Life-Threatening, Hospitalization)
  Sender: FDA-Public Use
  Company Number: None

PATIENT
  Age: 69 Year
  Sex: Male
  Weight: 53.3 kg

DRUGS (4)
  1. MORPHINE [Suspect]
  2. ALPRAZOLAM [Concomitant]
  3. IBUPROFEN [Concomitant]
  4. METOCLOPRAMIDE [Concomitant]

REACTIONS (1)
  - RESPIRATORY DISTRESS [None]
